FAERS Safety Report 7552539-8 (Version None)
Quarter: 2011Q2

REPORT INFORMATION
  Report Type: 
  Country: None (occurrence: None)
  Receive Date: 20110616
  Receipt Date: 20110606
  Transmission Date: 20111010
  Serious: Yes (Hospitalization)
  Sender: FDA-Public Use
  Company Number: BR-JNJFOC-20110605251

PATIENT
  Sex: Female
  Weight: 11 kg

DRUGS (2)
  1. TYLENOL (CAPLET) [Suspect]
     Route: 048
  2. TYLENOL (CAPLET) [Suspect]
     Indication: ACCIDENTAL EXPOSURE
     Route: 048
     Dates: start: 20110606, end: 20110606

REACTIONS (5)
  - ACCIDENTAL OVERDOSE [None]
  - VOMITING [None]
  - ACCIDENTAL DRUG INTAKE BY CHILD [None]
  - SOMNOLENCE [None]
  - NAUSEA [None]
